FAERS Safety Report 5672770-6 (Version None)
Quarter: 2008Q1

REPORT INFORMATION
  Report Type: 
  Country: None (occurrence: None)
  Receive Date: 20080317
  Receipt Date: 20080307
  Transmission Date: 20080703
  Serious: Yes (Other)
  Sender: FDA-Public Use
  Company Number: CHNY2008BR01198

PATIENT
  Age: 40 Year
  Sex: Female
  Weight: 96 kg

DRUGS (1)
  1. CIBALENAA (NCH)(CAFFEINE CITRATE, ACETYLSALICYLIC ACID, ACETAMINOPHEN [Suspect]
     Indication: HEADACHE
     Dosage: 2 DF, ONCE/SINGLE, ORAL
     Route: 048
     Dates: start: 20080307

REACTIONS (2)
  - BLOOD PRESSURE INCREASED [None]
  - TREATMENT NONCOMPLIANCE [None]
